FAERS Safety Report 21322777 (Version 1)
Quarter: 2022Q3

REPORT INFORMATION
  Report Type: Spontaneous
  Country: US (occurrence: US)
  Receive Date: 20220912
  Receipt Date: 20220912
  Transmission Date: 20221027
  Serious: No
  Sender: FDA-Public Use
  Company Number: US-PFIZER INC-202201147491

PATIENT
  Age: 69 Year
  Sex: Female
  Weight: 88.3 kg

DRUGS (4)
  1. IBRANCE [Suspect]
     Active Substance: PALBOCICLIB
     Indication: Breast cancer female
     Dosage: 125 MG, 1X/DAY, 125 MG, 3 WEEKS ON AND 1 OFF
     Route: 048
     Dates: start: 20220107
  2. FASLODEX [Concomitant]
     Active Substance: FULVESTRANT
     Indication: Breast cancer female
     Dosage: 250 MG
  3. XGEVA [Concomitant]
     Active Substance: DENOSUMAB
     Indication: Breast cancer female
     Dosage: 120 MG
  4. XGEVA [Concomitant]
     Active Substance: DENOSUMAB
     Indication: Blood calcium increased

REACTIONS (1)
  - Stomatitis [Not Recovered/Not Resolved]

NARRATIVE: CASE EVENT DATE: 20220901
